FAERS Safety Report 10237025 (Version 1)
Quarter: 2014Q1

REPORT INFORMATION
  Report Type: Spontaneous
  Country: US (occurrence: None)
  Receive Date: 20140306
  Receipt Date: 20140306
  Transmission Date: 20141002
  Serious: Yes (Other)
  Sender: FDA-Public Use
  Company Number: 163-21880-13054823

PATIENT
  Age: 73 Year
  Sex: Male

DRUGS (3)
  1. REVLIMID (LENALIDOMIDE) (25 MILLIGRAM CAPSULES) [Suspect]
     Indication: PLASMA CELL MYELOMA
     Dosage: 21 IN 28 D
     Route: 048
     Dates: start: 20130503
  2. ZOMETA (ZOLENDRONIC ACID) (INJECTION) [Concomitant]
  3. DEAMETHASONE (DEXAMETHASONE) (UNKNOWN) [Concomitant]

REACTIONS (4)
  - Upper respiratory tract infection [None]
  - Lower respiratory tract infection [None]
  - Sinus headache [None]
  - Oropharyngeal pain [None]
